FAERS Safety Report 4692420-5 (Version None)
Quarter: 2005Q2

REPORT INFORMATION
  Report Type: 
  Country: None (occurrence: None)
  Receive Date: 20050615
  Receipt Date: 20050602
  Transmission Date: 20051028
  Serious: Yes (Hospitalization, Other)
  Sender: FDA-Public Use
  Company Number: 2005084424

PATIENT
  Age: 68 Year
  Sex: Male

DRUGS (6)
  1. SORTIS (ATORVASTATIN) [Suspect]
     Indication: HYPERCHOLESTEROLAEMIA
     Dosage: 20 MG ORAL
     Route: 048
  2. TENORMIN [Concomitant]
  3. PANTOPRAZOLE SODIUM [Concomitant]
  4. ACERBON (LISINOPRIL) [Concomitant]
  5. MARCUMAR [Concomitant]
  6. PROSTA FINK (CURCURBITA, ECHINACEA EXTRACT, ORTHOSIPHON, RUBIA ROOT TI [Concomitant]

REACTIONS (2)
  - MYALGIA [None]
  - SENSATION OF HEAVINESS [None]
